FAERS Safety Report 6518723-7 (Version None)
Quarter: 2009Q4

REPORT INFORMATION
  Report Type: 
  Country: None (occurrence: None)
  Receive Date: 20091228
  Receipt Date: 20091223
  Transmission Date: 20100525
  Serious: Yes (Death, Other)
  Sender: FDA-Public Use
  Company Number: PHBS2008DK03136

PATIENT
  Sex: Female

DRUGS (2)
  1. ZOMETA [Suspect]
     Indication: METASTASES TO BONE
     Dosage: 4 MG EVERY SECOND MONTHS
     Route: 042
     Dates: start: 20040601, end: 20051201
  2. ZOMETA [Suspect]
     Dosage: 4 MG EVERY SECOND MONTH
     Route: 042
     Dates: start: 20060301

REACTIONS (6)
  - BONE DISORDER [None]
  - BREAST CANCER [None]
  - INFECTION [None]
  - OSTEONECROSIS [None]
  - SEQUESTRECTOMY [None]
  - TOOTH EXTRACTION [None]
